FAERS Safety Report 23329480 (Version 1)
Quarter: 2023Q4

REPORT INFORMATION
  Report Type: Other
  Country: CA (occurrence: CA)
  Receive Date: 20231222
  Receipt Date: 20231222
  Transmission Date: 20240110
  Serious: Yes (Other)
  Sender: FDA-Public Use
  Company Number: CA-APOTEX-2023AP018166

PATIENT
  Age: 1 Year
  Sex: Male

DRUGS (1)
  1. FAMOTIDINE [Suspect]
     Active Substance: FAMOTIDINE
     Indication: Magnetic resonance imaging
     Dosage: UNK
     Route: 065

REACTIONS (2)
  - Lip swelling [Unknown]
  - Eye swelling [Unknown]
